FAERS Safety Report 24382275 (Version 3)
Quarter: 2024Q4

REPORT INFORMATION
  Report Type: Spontaneous
  Country: NL (occurrence: NL)
  Receive Date: 20241001
  Receipt Date: 20241219
  Transmission Date: 20250115
  Serious: Yes (Other)
  Sender: CELLTRION
  Company Number: NL-ABBVIE-5700341

PATIENT

DRUGS (14)
  1. INFLIXIMAB [Suspect]
     Active Substance: INFLIXIMAB
     Indication: Crohn^s disease
     Dosage: 300 MG, EVERY 8 WEEKS
     Route: 042
     Dates: start: 20170615, end: 20171115
  2. INFLIXIMAB [Suspect]
     Active Substance: INFLIXIMAB
     Dosage: UNK
     Route: 065
     Dates: start: 2017
  3. USTEKINUMAB [Suspect]
     Active Substance: USTEKINUMAB
     Indication: Crohn^s disease
     Dosage: UNK
     Route: 065
     Dates: start: 2017
  4. ADALIMUMAB [Suspect]
     Active Substance: ADALIMUMAB
     Indication: Crohn^s disease
     Dosage: 40 MG, EVERY WEEK
     Route: 058
     Dates: start: 2018, end: 201903
  5. ADALIMUMAB [Suspect]
     Active Substance: ADALIMUMAB
     Dosage: UNKNOWN
     Route: 058
     Dates: start: 2018, end: 201809
  6. ADALIMUMAB [Suspect]
     Active Substance: ADALIMUMAB
     Dosage: 40 MG EVERY 2 WEEKS
     Route: 058
     Dates: start: 201712, end: 201801
  7. AZATHIOPRINE SODIUM [Suspect]
     Active Substance: AZATHIOPRINE SODIUM
     Indication: Crohn^s disease
     Dosage: 75 MG, DAILY
     Route: 048
     Dates: start: 20170510
  8. AZATHIOPRINE SODIUM [Suspect]
     Active Substance: AZATHIOPRINE SODIUM
     Dosage: UNK
     Route: 065
     Dates: start: 2017
  9. METHOTREXATE SODIUM [Suspect]
     Active Substance: METHOTREXATE SODIUM
     Indication: Crohn^s disease
     Dosage: 25 MG EVERY WEEK
     Route: 058
     Dates: start: 202008, end: 202112
  10. METHOTREXATE SODIUM [Suspect]
     Active Substance: METHOTREXATE SODIUM
     Dosage: UNK
     Route: 065
     Dates: start: 2017
  11. PREDNISONE ACETATE [Suspect]
     Active Substance: PREDNISONE ACETATE
     Indication: Crohn^s disease
     Dosage: 10 MG, DAILY
     Route: 048
     Dates: start: 20190701
  12. THIOGUANINE [Suspect]
     Active Substance: THIOGUANINE
     Indication: Crohn^s disease
     Dosage: UNK
     Route: 065
     Dates: start: 2017
  13. USTEKINUMAB [Suspect]
     Active Substance: USTEKINUMAB
     Indication: Crohn^s disease
     Dosage: 390 MG
     Route: 058
     Dates: start: 20190731, end: 202007
  14. USTEKINUMAB [Suspect]
     Active Substance: USTEKINUMAB
     Dosage: 390 MG
     Route: 042
     Dates: start: 201906, end: 20190731

REACTIONS (8)
  - Proctocolectomy [Unknown]
  - Crohn^s disease [Not Recovered/Not Resolved]
  - Liver function test increased [Unknown]
  - Adverse drug reaction [Unknown]
  - Adverse drug reaction [Unknown]
  - Therapeutic product effect decreased [Not Recovered/Not Resolved]
  - Therapeutic product effect decreased [Not Recovered/Not Resolved]
  - Therapeutic product effect incomplete [Unknown]

NARRATIVE: CASE EVENT DATE: 20221004
